FAERS Safety Report 7708577-5 (Version None)
Quarter: 2011Q3

REPORT INFORMATION
  Report Type: 
  Country: None (occurrence: None)
  Receive Date: 20110810
  Receipt Date: 20110810
  Transmission Date: 20111222
  Serious: Yes (Hospitalization)
  Sender: FDA-Public Use
  Company Number: 201111005

PATIENT
  Age: 41 Year
  Sex: Female

DRUGS (4)
  1. LIORESAL [Suspect]
     Indication: MUSCLE SPASTICITY
     Dosage: 470.95 MCG, DAILY, INTRATHECAL
     Route: 037
  2. CLONIDINE [Concomitant]
  3. FENTANYL [Concomitant]
  4. BUPIVACAINE HCL [Concomitant]

REACTIONS (5)
  - HYPERTENSION [None]
  - TACHYCARDIA [None]
  - SURGICAL PROCEDURE REPEATED [None]
  - DEVICE DISLOCATION [None]
  - DRUG WITHDRAWAL SYNDROME [None]
